FAERS Safety Report 23934968 (Version 2)
Quarter: 2025Q2

REPORT INFORMATION
  Report Type: Spontaneous
  Country: US (occurrence: US)
  Receive Date: 20240604
  Receipt Date: 20250415
  Transmission Date: 20250717
  Serious: Yes (Hospitalization, Other)
  Sender: AUROBINDO
  Company Number: US-AUROBINDO-AUR-APL-2024-025945

PATIENT
  Age: 3 Day

DRUGS (2)
  1. VASOPRESSIN [Suspect]
     Active Substance: VASOPRESSIN
     Indication: Shock
     Route: 065
  2. VASOPRESSIN [Suspect]
     Active Substance: VASOPRESSIN
     Route: 065

REACTIONS (4)
  - Diabetes insipidus [Recovering/Resolving]
  - Polyuria [Recovering/Resolving]
  - Hypernatraemia [Recovering/Resolving]
  - Withdrawal syndrome [Unknown]
